FAERS Safety Report 6537381-9 (Version None)
Quarter: 2010Q1

REPORT INFORMATION
  Report Type: 
  Country: None (occurrence: None)
  Receive Date: 20100114
  Receipt Date: 20100112
  Transmission Date: 20100710
  Serious: Yes (Other)
  Sender: FDA-Public Use
  Company Number: US-BRISTOL-MYERS SQUIBB COMPANY-14930580

PATIENT
  Age: 41 Year
  Sex: Female
  Weight: 63 kg

DRUGS (8)
  1. ABILIFY [Suspect]
     Indication: BIPOLAR DISORDER
     Dates: start: 20090101
  2. ABILIFY [Suspect]
     Indication: DEPRESSION
     Dates: start: 20090101
  3. LITHIUM [Concomitant]
  4. XANAX [Concomitant]
     Dates: end: 20100101
  5. TYLENOL PM [Concomitant]
  6. AMBIEN [Concomitant]
     Dates: end: 20100101
  7. MULTI-VITAMINS [Concomitant]
  8. BLACK COHOSH [Concomitant]

REACTIONS (4)
  - ANGER [None]
  - DELUSION [None]
  - HALLUCINATION [None]
  - LOSS OF CONSCIOUSNESS [None]
